FAERS Safety Report 6645695-7 (Version None)
Quarter: 2010Q1

REPORT INFORMATION
  Report Type: 
  Country: None (occurrence: None)
  Receive Date: 20100318
  Receipt Date: 20100318
  Transmission Date: 20100710
  Serious: Yes (Hospitalization)
  Sender: FDA-Public Use
  Company Number: None

PATIENT
  Age: 47 Year
  Sex: Female
  Weight: 88.4514 kg

DRUGS (2)
  1. LOTREL [Suspect]
     Indication: HYPERTENSION
     Dosage: ONCE A DAY
     Dates: start: 20080808, end: 20100301
  2. LOTREL [Suspect]
     Indication: RENAL DISORDER
     Dosage: ONCE A DAY
     Dates: start: 20080808, end: 20100301

REACTIONS (2)
  - SWELLING FACE [None]
  - SWOLLEN TONGUE [None]
